FAERS Safety Report 8113492-1 (Version None)
Quarter: 2012Q1

REPORT INFORMATION
  Report Type: 
  Country: None (occurrence: None)
  Receive Date: 20120131
  Receipt Date: 20110729
  Transmission Date: 20120608
  Serious: Yes (Hospitalization, Other)
  Sender: FDA-Public Use
  Company Number: 2011004004

PATIENT
  Age: 27 Year
  Sex: Female

DRUGS (2)
  1. ERYTHROMYCIN [Suspect]
     Dosage: 1000 MG (250 MG)
  2. CYTOTEC [Suspect]
     Dosage: UNK (400 MCG, 4

REACTIONS (4)
  - UTERINE RUPTURE [None]
  - FOETAL DEATH [None]
  - MATERNAL EXPOSURE DURING PREGNANCY [None]
  - ACUTE ABDOMEN [None]
